FAERS Safety Report 4855842-5 (Version None)
Quarter: 2005Q4

REPORT INFORMATION
  Report Type: 
  Country: None (occurrence: None)
  Receive Date: 20051216
  Receipt Date: 20051207
  Transmission Date: 20060501
  Serious: Yes (Hospitalization)
  Sender: FDA-Public Use
  Company Number: US-MERCK-0512USA01272

PATIENT
  Sex: Male

DRUGS (2)
  1. VIOXX [Suspect]
     Route: 048
     Dates: start: 20010330, end: 20011023
  2. VIOXX [Suspect]
     Route: 048
     Dates: start: 20030617, end: 20030925

REACTIONS (2)
  - INJURY [None]
  - MYOCARDIAL INFARCTION [None]
